FAERS Safety Report 4668275-1 (Version None)
Quarter: 2005Q2

REPORT INFORMATION
  Report Type: 
  Country: None (occurrence: None)
  Receive Date: 20050523
  Receipt Date: 20041103
  Transmission Date: 20051028
  Serious: Yes (Other)
  Sender: FDA-Public Use
  Company Number: PHEH2004US11895

PATIENT
  Age: 44 Year
  Sex: Female

DRUGS (6)
  1. AREDIA [Suspect]
     Indication: METASTASES TO BONE
     Dosage: 90 MG, QMO
     Route: 042
     Dates: start: 20011123, end: 20020322
  2. FASLODEX [Concomitant]
     Indication: BREAST CANCER
     Dosage: UNK, QMO
  3. ZOMETA [Suspect]
     Indication: METASTASES TO BONE
     Dosage: 4 MG, QMO
     Route: 042
     Dates: start: 20020501, end: 20040801
  4. HERCEPTIN ^HOFFMANN-LA ROCHE^ [Concomitant]
     Indication: BREAST CANCER
     Dosage: UNK, QW
     Dates: start: 20011102
  5. PROZAC [Concomitant]
     Indication: DEPRESSION
  6. PERCOCET [Concomitant]
     Indication: PAIN

REACTIONS (6)
  - BONE DISORDER [None]
  - IMPAIRED HEALING [None]
  - ORAL PAIN [None]
  - OSTEONECROSIS [None]
  - PERIODONTAL INFECTION [None]
  - TOOTH EXTRACTION [None]
